FAERS Safety Report 15587317 (Version 1)
Quarter: 2018Q4

REPORT INFORMATION
  Report Type: Spontaneous
  Country: US (occurrence: US)
  Receive Date: 20181101
  Receipt Date: 20181101
  Transmission Date: 20190205
  Serious: No
  Sender: FDA-Public Use
  Company Number: None

PATIENT
  Age: 69 Year
  Sex: Female
  Weight: 53 kg

DRUGS (1)
  1. GEMCITABINE HYDROCHLORIDE (613327) [Suspect]
     Active Substance: GEMCITABINE HYDROCHLORIDE
     Dates: end: 20181011

REACTIONS (2)
  - Fatigue [None]
  - Therapy change [None]

NARRATIVE: CASE EVENT DATE: 20181005
